FAERS Safety Report 8230226-0 (Version None)
Quarter: 2012Q1

REPORT INFORMATION
  Report Type: 
  Country: None (occurrence: None)
  Receive Date: 20120321
  Receipt Date: 20120321
  Transmission Date: 20120608
  Serious: Yes (Hospitalization)
  Sender: FDA-Public Use
  Company Number: None

PATIENT
  Sex: Female
  Weight: 84.8 kg

DRUGS (5)
  1. POTASSIUM [Concomitant]
  2. CARBOPLATIN [Suspect]
     Dosage: 673 MG
     Dates: end: 20120206
  3. REGLAN [Concomitant]
  4. VERAPAMIL [Concomitant]
  5. TAXOL [Suspect]
     Dosage: 154 MG
     Dates: end: 20120213

REACTIONS (10)
  - DYSPNOEA [None]
  - ACUTE RESPIRATORY DISTRESS SYNDROME [None]
  - ASTHENIA [None]
  - FEELING ABNORMAL [None]
  - COUGH [None]
  - OXYGEN SATURATION DECREASED [None]
  - RASH [None]
  - FATIGUE [None]
  - PYREXIA [None]
  - PLEURAL EFFUSION [None]
